FAERS Safety Report 11781425 (Version 1)
Quarter: 2015Q4

REPORT INFORMATION
  Report Type: Report from Study
  Country: KR (occurrence: KR)
  Receive Date: 20151126
  Receipt Date: 20151126
  Transmission Date: 20160305
  Serious: Yes (Other)
  Sender: FDA-Public Use
  Company Number: KR-TEVA-612682ISR

PATIENT
  Age: 79 Year
  Sex: Female
  Weight: 48 kg

DRUGS (13)
  1. MOSAPRIDE [Concomitant]
     Active Substance: MOSAPRIDE
     Indication: PROPHYLAXIS
     Dosage: 5MG
     Dates: start: 20140424
  2. BENSERAZIDE [Concomitant]
     Active Substance: BENSERAZIDE
     Indication: PARKINSON^S DISEASE
     Dosage: 125
     Dates: start: 20150430
  3. AZILECT [Suspect]
     Active Substance: RASAGILINE MESYLATE
     Indication: PARKINSON^S DISEASE
     Dosage: 1 MILLIGRAM DAILY;
     Route: 048
     Dates: start: 20150115
  4. STALEVO [Concomitant]
     Active Substance: CARBIDOPA\ENTACAPONE\LEVODOPA
     Indication: PARKINSON^S DISEASE
     Dosage: 200/50/200MG
     Dates: start: 20141016
  5. BENSERAZIDE [Concomitant]
     Active Substance: BENSERAZIDE
     Indication: PARKINSON^S DISEASE
     Dosage: 125
     Dates: start: 20141016, end: 20150429
  6. ARTEMISIA HERB 95% ETHANOL EXT [Concomitant]
     Indication: PROPHYLAXIS
     Dosage: 60MG
     Dates: start: 20080310
  7. XANAX [Concomitant]
     Active Substance: ALPRAZOLAM
     Indication: RAPID EYE MOVEMENTS SLEEP ABNORMAL
     Dosage: 0.25MG
     Dates: start: 20090410
  8. REQUIP PD [Concomitant]
     Indication: PARKINSON^S DISEASE
     Dosage: 8MG
     Dates: start: 20130401
  9. MAGNESIUM OXIDE. [Concomitant]
     Active Substance: MAGNESIUM OXIDE
     Indication: CONSTIPATION
     Dosage: 500MG
     Dates: start: 20140724
  10. PROPRANOLOL [Concomitant]
     Active Substance: PROPRANOLOL\PROPRANOLOL HYDROCHLORIDE
     Indication: PROPHYLAXIS
     Dosage: 40MG
     Dates: start: 20120917, end: 20150429
  11. REQUIP [Concomitant]
     Active Substance: ROPINIROLE HYDROCHLORIDE
     Indication: PARKINSON^S DISEASE
     Dosage: 2MG
     Dates: start: 20130401
  12. AMANTADINE [Concomitant]
     Active Substance: AMANTADINE
     Indication: PARKINSON^S DISEASE
     Dosage: 100MG
     Dates: start: 20070205, end: 20150729
  13. PROPRANOLOL [Concomitant]
     Active Substance: PROPRANOLOL\PROPRANOLOL HYDROCHLORIDE
     Indication: PROPHYLAXIS
     Dosage: 40MG
     Dates: start: 20150430

REACTIONS (1)
  - Dementia [Recovering/Resolving]

NARRATIVE: CASE EVENT DATE: 20150315
